FAERS Safety Report 8461363-3 (Version None)
Quarter: 2012Q2

REPORT INFORMATION
  Report Type: 
  Country: None (occurrence: None)
  Receive Date: 20120625
  Receipt Date: 20120611
  Transmission Date: 20120825
  Serious: Yes (Life-Threatening, Hospitalization)
  Sender: FDA-Public Use
  Company Number: DE-CELGENEUS-062-50794-12061060

PATIENT
  Age: 74 Year
  Sex: Female
  Weight: 70 kg

DRUGS (9)
  1. DEXAMETHASONE [Concomitant]
     Dosage: 24 MILLIGRAM
     Route: 065
     Dates: start: 20120401
  2. VIDAZA [Suspect]
     Dosage: 75 MILLIGRAM/SQ. METER
     Route: 058
     Dates: start: 20110801, end: 20120501
  3. AMLODIPINE [Concomitant]
     Dosage: 5 MILLIGRAM
     Route: 065
  4. EPOSARTAN [Concomitant]
     Dosage: 600 MILLIGRAM
     Route: 065
  5. LEVOTHYROXINE SODIUM [Concomitant]
     Dosage: 25 MICROGRAM
     Route: 065
  6. METOPROLOL TARTRATE [Concomitant]
     Route: 065
  7. PANTOPRAZOLE [Concomitant]
     Dosage: 40 MILLIGRAM
     Route: 065
  8. DEXAMETHASONE [Concomitant]
     Dosage: 4 MILLIGRAM
     Route: 065
  9. NOVALGIN [Concomitant]
     Dosage: 80 MILLIGRAM
     Route: 065

REACTIONS (1)
  - PULMONARY FIBROSIS [None]
